FAERS Safety Report 7763963-2 (Version None)
Quarter: 2011Q3

REPORT INFORMATION
  Report Type: 
  Country: None (occurrence: None)
  Receive Date: 20110921
  Receipt Date: 20101112
  Transmission Date: 20111222
  Serious: No
  Sender: FDA-Public Use
  Company Number: US-BAYER-201041385NA

PATIENT
  Sex: Male

DRUGS (3)
  1. ANTIHYPERTENSIVES [Concomitant]
  2. ANTI-DIABETICS [Concomitant]
  3. LEVITRA [Suspect]

REACTIONS (1)
  - ADVERSE DRUG REACTION [None]
